FAERS Safety Report 23910898 (Version 1)
Quarter: 2024Q2

REPORT INFORMATION
  Report Type: Spontaneous
  Country: US (occurrence: US)
  Receive Date: 20240528
  Receipt Date: 20240528
  Transmission Date: 20240716
  Serious: No
  Sender: FDA-Public Use
  Company Number: US-AVADEL CNS PHARMACEUTICALS, LLC-2024AVA00567

PATIENT
  Age: 47 Year
  Sex: Male

DRUGS (1)
  1. LUMRYZ [Suspect]
     Active Substance: SODIUM OXYBATE
     Indication: Narcolepsy
     Dosage: 6 G, ONCE NIGHTLY
     Dates: start: 20240321, end: 20240408

REACTIONS (6)
  - Middle insomnia [Unknown]
  - Feeling abnormal [Unknown]
  - Discomfort [Unknown]
  - Lethargy [Unknown]
  - Nocturia [Unknown]
  - Somnolence [Unknown]

NARRATIVE: CASE EVENT DATE: 20240321
